FAERS Safety Report 7473349-6 (Version None)
Quarter: 2011Q2

REPORT INFORMATION
  Report Type: 
  Country: None (occurrence: None)
  Receive Date: 20110511
  Receipt Date: 20110427
  Transmission Date: 20111010
  Serious: Yes (Other)
  Sender: FDA-Public Use
  Company Number: US-CELGENEUS-163-21880-11043564

PATIENT
  Age: 74 Year
  Sex: Male
  Weight: 88.3 kg

DRUGS (22)
  1. DOCETAXEL [Suspect]
     Dosage: 75 MILLIGRAM/SQ. METER
     Route: 051
     Dates: start: 20100809
  2. ELIGARD [Concomitant]
     Route: 065
  3. FENOFIBRATE [Concomitant]
     Route: 065
  4. METOPROLOL SUCCINATE [Concomitant]
     Route: 065
  5. METFORMIN HCL [Concomitant]
     Route: 065
  6. METRONIDAZOLE [Concomitant]
     Dosage: 500 MILLIGRAM
     Route: 048
     Dates: start: 20110301
  7. CHLORHEXIDINE [Concomitant]
     Route: 048
     Dates: start: 20110301
  8. AVASTIN [Suspect]
     Dosage: 15 MILLIGRAM/KILOGRAM
     Route: 051
     Dates: start: 20100809
  9. ZOMETA [Suspect]
     Route: 065
  10. CIPROFLOXACIN [Concomitant]
     Dosage: 500 MILLIGRAM
     Route: 048
     Dates: start: 20110301
  11. REVLIMID [Suspect]
     Dosage: 25 MILLIGRAM
     Route: 048
     Dates: start: 20100809
  12. LISINOPRIL [Concomitant]
     Route: 065
  13. PLAVIX [Concomitant]
     Route: 065
  14. ZOCOR [Concomitant]
     Route: 065
  15. REVLIMID [Suspect]
     Dosage: 25 MILLIGRAM
     Route: 048
     Dates: start: 20110328, end: 20110422
  16. MELPHALAN HYDROCHLORIDE [Suspect]
     Dosage: 5 MILLIGRAM
     Route: 048
     Dates: start: 20100809
  17. MELPHALAN HYDROCHLORIDE [Suspect]
     Dosage: 5 MILLIGRAM
     Route: 048
     Dates: start: 20110328, end: 20110422
  18. ASPIRIN [Concomitant]
     Route: 065
  19. CALCIUM WITH VITAMIN D [Concomitant]
     Route: 065
  20. IMODIUM [Concomitant]
     Route: 065
  21. JANUVIA [Concomitant]
     Route: 065
  22. RAPAFLO [Concomitant]
     Route: 065

REACTIONS (1)
  - OSTEONECROSIS OF JAW [None]
